FAERS Safety Report 16827165 (Version 1)
Quarter: 2019Q3

REPORT INFORMATION
  Report Type: Spontaneous
  Country: US (occurrence: US)
  Receive Date: 20190729
  Receipt Date: 20190729
  Transmission Date: 20191005
  Serious: Yes (Hospitalization)
  Sender: FDA-Public Use
  Company Number: None

PATIENT
  Age: 44 Year
  Sex: Female

DRUGS (4)
  1. DICLOFENAC TAB [Concomitant]
     Active Substance: DICLOFENAC
  2. ENBREL [Suspect]
     Active Substance: ETANERCEPT
     Indication: MULTIPLE SCLEROSIS
     Dosage: ?          OTHER FREQUENCY:Q 7 DAYS ;?
     Route: 058
     Dates: start: 20190523
  3. GABAPENTIN T [Concomitant]
     Active Substance: GABAPENTIN
  4. ENBREL [Concomitant]
     Active Substance: ETANERCEPT

REACTIONS (1)
  - Shoulder operation [None]

NARRATIVE: CASE EVENT DATE: 20190729
